FAERS Safety Report 10615041 (Version 2)
Quarter: 2015Q1

REPORT INFORMATION
  Report Type: Report from Study
  Country: FI (occurrence: FI)
  Receive Date: 20141201
  Receipt Date: 20150105
  Transmission Date: 20150720
  Serious: Yes (Hospitalization, Other)
  Sender: FDA-Public Use
  Company Number: PHHY2014FI152818

PATIENT
  Age: 51 Year
  Sex: Male

DRUGS (11)
  1. LEPONEX [Suspect]
     Active Substance: CLOZAPINE
     Dosage: 400 MG DAILY (150 MG IN MORNING PLUS 250 MG IN EVENING)
     Route: 065
     Dates: start: 2014, end: 20141022
  2. SERTRALIN//SERTRALINE [Concomitant]
     Indication: PRODUCT USED FOR UNKNOWN INDICATION
     Dosage: 100 MG, QD
     Route: 065
  3. ABILIFY [Concomitant]
     Active Substance: ARIPIPRAZOLE
     Dosage: UNK
     Route: 065
     Dates: end: 20141009
  4. FURESIS [Concomitant]
     Active Substance: FUROSEMIDE
     Indication: PRODUCT USED FOR UNKNOWN INDICATION
     Dosage: UNK
     Route: 065
     Dates: end: 2014
  5. LEPONEX [Suspect]
     Active Substance: CLOZAPINE
     Indication: SCHIZOPHRENIA, UNDIFFERENTIATED TYPE
     Dosage: 12.5 MG, QD (25 MG DIVIDED INTO HALF)
     Route: 065
     Dates: start: 20140923
  6. LEPONEX [Suspect]
     Active Substance: CLOZAPINE
     Dosage: 300 MG DAILY (100 MG IN MORNING PLUS 200 MG IN EVENING)
     Route: 065
     Dates: start: 20141022, end: 20141209
  7. LEPONEX [Suspect]
     Active Substance: CLOZAPINE
     Dosage: 250 MG DAILY (100 MG IN MORNING PLUS150 MG IN EVENING)
     Route: 065
     Dates: start: 20141209
  8. ABILIFY [Concomitant]
     Active Substance: ARIPIPRAZOLE
     Indication: SCHIZOPHRENIA, UNDIFFERENTIATED TYPE
     Dosage: 15 MG
     Route: 065
  9. RISPERDAL CONSTA [Concomitant]
     Active Substance: RISPERIDONE
     Dosage: 25 MG
     Route: 065
     Dates: start: 20141006
  10. RISPERDAL CONSTA [Concomitant]
     Active Substance: RISPERIDONE
     Indication: SCHIZOPHRENIA, UNDIFFERENTIATED TYPE
     Dosage: 50 MG, EVERY SECOND WEEK
     Route: 065
  11. DIAPAM [Concomitant]
     Active Substance: DIAZEPAM
     Indication: PRODUCT USED FOR UNKNOWN INDICATION
     Dosage: 5 MG, PRN
     Route: 065

REACTIONS (24)
  - Pleural effusion [Recovering/Resolving]
  - Blood creatinine increased [Unknown]
  - Pneumonia [Recovered/Resolved]
  - General physical health deterioration [Recovering/Resolving]
  - Hypoxia [Unknown]
  - Pleurisy [Recovering/Resolving]
  - Thrombocytosis [Unknown]
  - Pyuria [Unknown]
  - Dizziness [Recovered/Resolved]
  - Dyspnoea [Unknown]
  - Pyrexia [Recovering/Resolving]
  - Blood glucose increased [Unknown]
  - Hypocapnia [Unknown]
  - Enzyme level increased [Unknown]
  - Confusional state [Unknown]
  - Lymphocyte count decreased [Unknown]
  - Polycystic liver disease [Unknown]
  - N-terminal prohormone brain natriuretic peptide increased [Unknown]
  - Blood thyroid stimulating hormone decreased [Unknown]
  - Reticulocytosis [Unknown]
  - Blood albumin decreased [Recovering/Resolving]
  - Fatigue [Not Recovered/Not Resolved]
  - Normochromic normocytic anaemia [Unknown]
  - Eosinophil percentage increased [Unknown]

NARRATIVE: CASE EVENT DATE: 2014
